FAERS Safety Report 8880843 (Version 3)
Quarter: 2013Q1

REPORT INFORMATION
  Report Type: Spontaneous
  Country: SI (occurrence: SI)
  Receive Date: 20121101
  Receipt Date: 20130326
  Transmission Date: 20140127
  Serious: Yes (Death, Other)
  Sender: FDA-Public Use
  Company Number: SI-CELGENEUS-261-21880-12102713

PATIENT
  Age: 66 Year
  Sex: Female
  Weight: 60 kg

DRUGS (4)
  1. REVLIMID [Suspect]
     Indication: PLASMA CELL MYELOMA
     Route: 048
  2. REVLIMID [Suspect]
     Dosage: 25 MILLIGRAM
     Route: 048
     Dates: start: 20111220, end: 20120921
  3. DEXAMETHASONE [Suspect]
     Indication: BONE MARROW TRANSPLANT
     Route: 041
     Dates: start: 20110321, end: 20110728
  4. VELCADE [Suspect]
     Indication: BONE MARROW TRANSPLANT
     Route: 041
     Dates: start: 20110321, end: 20110728

REACTIONS (3)
  - Breast cancer recurrent [Unknown]
  - Breast cancer stage IV [Not Recovered/Not Resolved]
  - Death [Fatal]
